FAERS Safety Report 8616625-3 (Version None)
Quarter: 2012Q3

REPORT INFORMATION
  Report Type: 
  Country: None (occurrence: None)
  Receive Date: 20120823
  Receipt Date: 20120813
  Transmission Date: 20120928
  Serious: Yes (Congenital Anomaly)
  Sender: FDA-Public Use
  Company Number: DE-TEVA-353807GER

PATIENT
  Sex: Male
  Weight: 3.87 kg

DRUGS (5)
  1. CETIRIZINE [Suspect]
     Route: 064
  2. TD-IMPFSTOFF MERIEUX [Concomitant]
     Route: 064
  3. FEMIBION [Concomitant]
     Route: 064
  4. OTRIVIN [Suspect]
     Route: 064
  5. AMOXCLAV SANDOZ [Concomitant]
     Route: 064

REACTIONS (3)
  - CAESAREAN SECTION [None]
  - MATERNAL DRUGS AFFECTING FOETUS [None]
  - ANAL ATRESIA [None]
